FAERS Safety Report 6508741-7 (Version None)
Quarter: 2009Q4

REPORT INFORMATION
  Report Type: 
  Country: None (occurrence: None)
  Receive Date: 20091221
  Receipt Date: 20081230
  Transmission Date: 20100525
  Serious: No
  Sender: FDA-Public Use
  Company Number: US-ASTRAZENECA-2008UW28963

PATIENT
  Age: 60 Year
  Sex: Male
  Weight: 77.1 kg

DRUGS (2)
  1. CRESTOR [Suspect]
     Indication: BLOOD CHOLESTEROL ABNORMAL
     Dosage: 20 MG
     Route: 048
  2. CRESTOR [Suspect]
     Dosage: 10 MG
     Route: 048

REACTIONS (2)
  - ALOPECIA [None]
  - MYALGIA [None]
